FAERS Safety Report 17452581 (Version 3)
Quarter: 2020Q2

REPORT INFORMATION
  Report Type: Spontaneous
  Country: DK (occurrence: DK)
  Receive Date: 20200224
  Receipt Date: 20200424
  Transmission Date: 20200713
  Serious: Yes (Hospitalization, Other)
  Sender: FDA-Public Use
  Company Number: DK-BAYER-2020-029171

PATIENT
  Age: 20 Year
  Sex: Female

DRUGS (8)
  1. FERROFUMARAT [Concomitant]
     Indication: IRON DEFICIENCY
     Dosage: STYRKE: UKENDT.
     Route: 048
     Dates: start: 20180202
  2. PENTASA [Concomitant]
     Active Substance: MESALAMINE
     Indication: COLITIS ULCERATIVE
     Dosage: STYRKE: 1 G
     Route: 054
  3. ALLOPURINOL. [Concomitant]
     Active Substance: ALLOPURINOL
     Indication: COLITIS ULCERATIVE
     Dosage: STYRKE: 100 MG
     Route: 048
     Dates: start: 20170912
  4. VALACICLOVIR [Concomitant]
     Active Substance: VALACYCLOVIR HYDROCHLORIDE
     Indication: HERPES VIRUS INFECTION
     Dosage: STYRKE: 500 MG
     Route: 048
     Dates: start: 20190529
  5. ASACOL [Concomitant]
     Active Substance: MESALAMINE
     Indication: COLITIS ULCERATIVE
     Dosage: STYRKE: 800 MG
     Route: 048
     Dates: start: 20160909
  6. KYLEENA [Suspect]
     Active Substance: LEVONORGESTREL
     Indication: CONTRACEPTION
     Dosage: STYRKE: 19,5 MG
     Route: 015
     Dates: start: 201902
  7. METRONIDAZOL [METRONIDAZOLE] [Concomitant]
     Active Substance: METRONIDAZOLE
     Indication: SKIN DISORDER
     Dosage: STYRKE: 1%
     Route: 048
     Dates: start: 20190320
  8. MERCAPTOPURIN [Concomitant]
     Active Substance: MERCAPTOPURINE
     Indication: COLITIS ULCERATIVE
     Dosage: STYRKE: 50 MG
     Route: 048
     Dates: start: 20170111

REACTIONS (8)
  - Fallopian tube perforation [Recovered/Resolved]
  - Pain [Recovered/Resolved]
  - Ectopic pregnancy with contraceptive device [Recovered/Resolved]
  - Haemoperitoneum [Recovered/Resolved]
  - Haemorrhage in pregnancy [Recovered/Resolved]
  - Salpingectomy [Recovered/Resolved]
  - Drug ineffective [None]
  - Abdominal pain lower [Recovered/Resolved]

NARRATIVE: CASE EVENT DATE: 2020
